FAERS Safety Report 8023697-6 (Version None)
Quarter: 2011Q4

REPORT INFORMATION
  Report Type: 
  Country: None (occurrence: None)
  Receive Date: 20111130
  Receipt Date: 20110207
  Transmission Date: 20120403
  Serious: Yes (Other)
  Sender: FDA-Public Use
  Company Number: 323002

PATIENT
  Age: 46 Year
  Sex: Female
  Weight: 71.2 kg

DRUGS (2)
  1. NOVOLOG [Suspect]
     Indication: TYPE 1 DIABETES MELLITUS
     Dosage: SLIDING SCALE 4X A DAY, SUBCUTANEOUS
     Route: 058
     Dates: start: 20100101
  2. LEVEMIR [Suspect]
     Indication: TYPE 1 DIABETES MELLITUS
     Dosage: 10 U, QD
     Dates: start: 20100101

REACTIONS (3)
  - HYPOGLYCAEMIC SEIZURE [None]
  - BLOOD GLUCOSE DECREASED [None]
  - HYPOGLYCAEMIC UNCONSCIOUSNESS [None]
